FAERS Safety Report 6574517-8 (Version None)
Quarter: 2010Q1

REPORT INFORMATION
  Report Type: 
  Country: None (occurrence: None)
  Receive Date: 20100209
  Receipt Date: 20091103
  Transmission Date: 20100710
  Serious: No
  Sender: FDA-Public Use
  Company Number: A0814767A

PATIENT
  Age: 56 Year
  Sex: Female

DRUGS (4)
  1. PAROXETINE HCL [Suspect]
     Indication: OBSESSIVE-COMPULSIVE DISORDER
     Dosage: 40MG PER DAY
     Route: 048
     Dates: start: 20050101, end: 20050101
  2. LIPITOR [Concomitant]
  3. DIAZIDE [Concomitant]
  4. VITAMIN [Concomitant]

REACTIONS (2)
  - NERVOUSNESS [None]
  - THERAPEUTIC RESPONSE DECREASED [None]
